FAERS Safety Report 9070694 (Version 1)
Quarter: 2013Q1

REPORT INFORMATION
  Report Type: Report from Study
  Country: US (occurrence: US)
  Receive Date: 20130129
  Receipt Date: 20130129
  Transmission Date: 20140127
  Serious: No
  Sender: FDA-Public Use
  Company Number: US-ABBOTT-12P-163-0926344-00

PATIENT
  Age: 23 Year
  Sex: Female

DRUGS (6)
  1. HUMIRA 40 MG/0.8 ML PEN [Suspect]
     Indication: CROHN^S DISEASE
     Dosage: UNKNOWN
     Dates: start: 20120215, end: 201203
  2. HUMIRA 40 MG/0.8 ML PEN [Suspect]
     Dates: start: 201203
  3. BUTRANS [Concomitant]
     Indication: PAIN
     Dosage: PATCH CHANGED WEEKLY
  4. DILAUDID [Concomitant]
     Indication: PAIN
     Dosage: EVERY 4 HOURS
  5. AZACTAM [Concomitant]
     Indication: PRODUCT USED FOR UNKNOWN INDICATION
  6. LOMOTIL [Concomitant]
     Indication: DIARRHOEA

REACTIONS (6)
  - Frequent bowel movements [Not Recovered/Not Resolved]
  - Hepatic enzyme increased [Unknown]
  - Haematochezia [Unknown]
  - Fatigue [Unknown]
  - Weight decreased [Unknown]
  - Therapeutic response unexpected [Unknown]
